FAERS Safety Report 10294765 (Version 2)
Quarter: 2014Q3

REPORT INFORMATION
  Report Type: Spontaneous
  Country: US (occurrence: US)
  Receive Date: 20140710
  Receipt Date: 20140710
  Transmission Date: 20150326
  Serious: No
  Sender: FDA-Public Use
  Company Number: US-PURDUE-USA-2014-0111603

PATIENT
  Sex: Male

DRUGS (2)
  1. BUTRANS [Suspect]
     Active Substance: BUPRENORPHINE
     Indication: PRODUCT USED FOR UNKNOWN INDICATION
     Dosage: 15 MCG/HR, WEEKLY
     Route: 062
  2. BUTRANS [Suspect]
     Active Substance: BUPRENORPHINE
     Dosage: 10 MCG/HR, WEEKLY
     Route: 062

REACTIONS (17)
  - Application site dryness [Unknown]
  - Application site discharge [Unknown]
  - Product quality issue [Unknown]
  - Wrong technique in drug usage process [Unknown]
  - Drug administered at inappropriate site [Unknown]
  - Application site erythema [Unknown]
  - Application site pruritus [Unknown]
  - Product adhesion issue [Unknown]
  - Application site rash [Unknown]
  - Drug effect decreased [Unknown]
  - Application site vesicles [Unknown]
  - Product physical issue [Unknown]
  - Device leakage [Unknown]
  - Product odour abnormal [Unknown]
  - Palpitations [Unknown]
  - Application site pain [Unknown]
  - Drug ineffective [Unknown]
